FAERS Safety Report 7239507-0 (Version None)
Quarter: 2011Q1

REPORT INFORMATION
  Report Type: 
  Country: None (occurrence: None)
  Receive Date: 20110121
  Receipt Date: 20110119
  Transmission Date: 20110831
  Serious: Yes (Hospitalization)
  Sender: FDA-Public Use
  Company Number: ES-ABBOTT-11P-144-0699008-00

PATIENT
  Age: 47 Year
  Sex: Male

DRUGS (4)
  1. SULFAMETOXAZOL/TRIMETOPRIM [Suspect]
     Indication: PRODUCT USED FOR UNKNOWN INDICATION
     Dosage: 3 DF
     Route: 048
     Dates: start: 20090327
  2. ALPRAZOLAM [Suspect]
     Indication: ANXIETY
     Route: 048
     Dates: start: 20090113
  3. TENOFOVIR/EMTRICITABINE (TRUVADA) [Suspect]
     Indication: HIV INFECTION
     Dosage: FORM STRENGTH 200 MG/245 MG 1 DF
     Route: 048
  4. KALETRA [Suspect]
     Indication: HIV INFECTION
     Dosage: FORM STRENGTH 200MG/50MG 4 DF  4 DF
     Route: 048
     Dates: start: 20090305

REACTIONS (1)
  - NEPHROTIC SYNDROME [None]
